FAERS Safety Report 8571157 (Version 2)
Quarter: 2014Q2

REPORT INFORMATION
  Report Type: Spontaneous
  Country: JP (occurrence: JP)
  Receive Date: 20120521
  Receipt Date: 20140521
  Transmission Date: 20141212
  Serious: Yes (Other)
  Sender: FDA-Public Use
  Company Number: JP-PFIZER INC-2012118394

PATIENT
  Sex: Male

DRUGS (4)
  1. LINEZOLID [Suspect]
     Indication: ENDOCARDITIS STAPHYLOCOCCAL
     Dosage: 30 MG/KG, 1X/DAY
     Route: 041
  2. LINEZOLID [Suspect]
     Indication: ENDOCARDITIS STAPHYLOCOCCAL
     Dosage: 30 MG/KG, 1X/DAY
     Route: 048
  3. VANCOMYCIN [Concomitant]
     Indication: ENDOCARDITIS STAPHYLOCOCCAL
     Dosage: 30 MG/KG
  4. VANCOMYCIN [Concomitant]
     Dosage: 90 MG/KG

REACTIONS (1)
  - Staphylococcal infection [Recovered/Resolved]
